FAERS Safety Report 5367963-1 (Version None)
Quarter: 2007Q2

REPORT INFORMATION
  Report Type: 
  Country: None (occurrence: None)
  Receive Date: 20070622
  Receipt Date: 20070612
  Transmission Date: 20071010
  Serious: Yes (Other)
  Sender: FDA-Public Use
  Company Number: AT-PFIZER INC-2007042191

PATIENT
  Sex: Female
  Weight: 2.9 kg

DRUGS (6)
  1. REVATIO [Suspect]
     Indication: ILL-DEFINED DISORDER
     Dates: start: 20070414, end: 20070517
  2. REVATIO [Suspect]
     Indication: PULMONARY HYPERTENSION
  3. MULTIVITAMIN [Concomitant]
  4. OXYGEN [Concomitant]
  5. VENDAL [Concomitant]
  6. TRUXAL [Concomitant]

REACTIONS (1)
  - RETINAL HAEMORRHAGE [None]
